FAERS Safety Report 24443287 (Version 2)
Quarter: 2024Q4

REPORT INFORMATION
  Report Type: Spontaneous
  Country: CH (occurrence: CH)
  Receive Date: 20241016
  Receipt Date: 20241104
  Transmission Date: 20250115
  Serious: Yes (Life-Threatening, Hospitalization)
  Sender: TEVA
  Company Number: CH-TEVA-VS-3253547

PATIENT
  Age: 31 Year
  Sex: Female

DRUGS (14)
  1. LACOSAMIDE [Suspect]
     Active Substance: LACOSAMIDE
     Indication: Status epilepticus
     Route: 065
  2. LEVETIRACETAM [Concomitant]
     Active Substance: LEVETIRACETAM
     Indication: Status epilepticus
     Route: 042
  3. LEVETIRACETAM [Concomitant]
     Active Substance: LEVETIRACETAM
     Indication: Status epilepticus
     Route: 042
  4. PERAMPANEL [Suspect]
     Active Substance: PERAMPANEL
     Indication: Status epilepticus
     Route: 065
  5. BRIVARACETAM [Suspect]
     Active Substance: BRIVARACETAM
     Indication: Status epilepticus
     Route: 065
  6. CLONAZEPAM [Suspect]
     Active Substance: CLONAZEPAM
     Indication: Status epilepticus
     Route: 050
  7. PROPOFOL [Suspect]
     Active Substance: PROPOFOL
     Indication: Status epilepticus
     Route: 050
  8. THIOPENTAL [Suspect]
     Active Substance: THIOPENTAL
     Indication: Status epilepticus
     Route: 050
  9. SEVOFLURANE [Suspect]
     Active Substance: SEVOFLURANE
     Indication: Status epilepticus
     Route: 055
  10. PHENOBARBITAL [Suspect]
     Active Substance: PHENOBARBITAL
     Indication: Status epilepticus
     Route: 065
  11. MIDAZOLAM [Concomitant]
     Active Substance: MIDAZOLAM
     Indication: Status epilepticus
     Route: 050
  12. MIDAZOLAM [Concomitant]
     Active Substance: MIDAZOLAM
     Indication: Status epilepticus
     Route: 050
  13. KETAMINE [Suspect]
     Active Substance: KETAMINE
     Indication: Status epilepticus
     Route: 050
  14. VALPROATE SODIUM [Concomitant]
     Active Substance: VALPROATE SODIUM
     Indication: Status epilepticus
     Dosage: FOUR TIMES A DAY
     Route: 042

REACTIONS (2)
  - Rebound effect [Unknown]
  - Epilepsy [Recovered/Resolved]
